FAERS Safety Report 7320595-8 (Version None)
Quarter: 2011Q1

REPORT INFORMATION
  Report Type: 
  Country: None (occurrence: None)
  Receive Date: 20110228
  Receipt Date: 20110217
  Transmission Date: 20110831
  Serious: Yes (Hospitalization)
  Sender: FDA-Public Use
  Company Number: SE-JNJFOC-20110205476

PATIENT
  Age: 68 Year
  Sex: Male

DRUGS (15)
  1. SODIUM BICARBONATE [Concomitant]
     Route: 065
  2. RISPERDAL CONSTA [Suspect]
     Route: 030
  3. RISPERDAL CONSTA [Suspect]
     Route: 030
  4. DIMOR [Concomitant]
     Dosage: 1 TABLET WHEN NEEDED MAXIMUM 4 TIMES ADAY
     Route: 065
  5. RISPERDAL CONSTA [Suspect]
     Indication: BIPOLAR DISORDER
     Route: 030
  6. RISPERDAL CONSTA [Suspect]
     Route: 030
  7. COZAAR [Concomitant]
     Route: 065
  8. ZANIDIP [Concomitant]
     Route: 065
  9. RENVELA [Concomitant]
     Route: 065
  10. RISPERDAL [Suspect]
     Indication: BIPOLAR DISORDER
     Route: 048
  11. ETALPHA [Concomitant]
     Route: 065
  12. WARAN [Concomitant]
     Dosage: AFTER A SPECIAL SCHEDULE
     Route: 065
  13. FURIX [Concomitant]
     Route: 065
  14. EMLA [Concomitant]
     Route: 065
  15. SODIUM POLYSTYRENE SULFONATE [Concomitant]
     Route: 065

REACTIONS (5)
  - TREATMENT NONCOMPLIANCE [None]
  - AKINESIA [None]
  - BIPOLAR DISORDER [None]
  - DRUG INEFFECTIVE [None]
  - INAPPROPRIATE SCHEDULE OF DRUG ADMINISTRATION [None]
